FAERS Safety Report 7707052-1 (Version None)
Quarter: 2011Q3

REPORT INFORMATION
  Report Type: 
  Country: None (occurrence: None)
  Receive Date: 20110819
  Receipt Date: 20110805
  Transmission Date: 20111222
  Serious: Yes (Other)
  Sender: FDA-Public Use
  Company Number: RU-1186584

PATIENT
  Age: 77 Year
  Sex: Female
  Weight: 73 kg

DRUGS (4)
  1. TAUFON [Concomitant]
  2. BISOPROLOL FUMARATE [Concomitant]
  3. DIROTON [Concomitant]
  4. TRAVATAN [Suspect]
     Indication: GLAUCOMA
     Dosage: 1 GTT QD OU, OPHTHALMIC
     Route: 047

REACTIONS (15)
  - SKIN HYPERPIGMENTATION [None]
  - GROWTH OF EYELASHES [None]
  - BLOOD PRESSURE INCREASED [None]
  - DYSPNOEA [None]
  - BACK PAIN [None]
  - NASOPHARYNGITIS [None]
  - URINARY INCONTINENCE [None]
  - ANGINA PECTORIS [None]
  - VISUAL ACUITY REDUCED [None]
  - CYSTITIS [None]
  - AGITATION [None]
  - VISION BLURRED [None]
  - BRONCHITIS [None]
  - OROPHARYNGEAL PAIN [None]
  - COUGH [None]
